FAERS Safety Report 6696581-8 (Version None)
Quarter: 2010Q2

REPORT INFORMATION
  Report Type: 
  Country: None (occurrence: None)
  Receive Date: 20100426
  Receipt Date: 20100414
  Transmission Date: 20101027
  Serious: Yes (Hospitalization, Other)
  Sender: FDA-Public Use
  Company Number: US-JNJFOC-20091200856

PATIENT
  Sex: Male
  Weight: 104.06 kg

DRUGS (3)
  1. LEVAQUIN [Suspect]
     Indication: EAR INFECTION
     Route: 048
  2. LEVAQUIN [Suspect]
     Indication: SINUSITIS
     Route: 048
  3. PREDNISONE [Suspect]
     Indication: SINUSITIS
     Route: 065

REACTIONS (4)
  - DEPRESSION [None]
  - MORTON'S NEUROMA [None]
  - TENDON RUPTURE [None]
  - TENDONITIS [None]
